FAERS Safety Report 14104746 (Version 1)
Quarter: 2017Q4

REPORT INFORMATION
  Report Type: Spontaneous
  Country: US (occurrence: US)
  Receive Date: 20171018
  Receipt Date: 20171018
  Transmission Date: 20180321
  Serious: No
  Sender: FDA-Public Use
  Company Number: US-AMGEN-USASP2017134147

PATIENT
  Age: 70 Year
  Sex: Female

DRUGS (1)
  1. PROLIA [Suspect]
     Active Substance: DENOSUMAB
     Indication: OSTEOPOROSIS
     Dosage: UNK
     Route: 065
     Dates: start: 201708

REACTIONS (6)
  - Arthralgia [Unknown]
  - Chest pain [Unknown]
  - Neck pain [Unknown]
  - Pain [Unknown]
  - Back pain [Recovering/Resolving]
  - Pain in extremity [Recovered/Resolved]
